FAERS Safety Report 13611188 (Version 1)
Quarter: 2017Q2

REPORT INFORMATION
  Report Type: Spontaneous
  Country: US (occurrence: US)
  Receive Date: 20170603
  Receipt Date: 20170603
  Transmission Date: 20170830
  Serious: Yes (Disabling)
  Sender: FDA-Public Use
  Company Number: None

PATIENT
  Age: 57 Year
  Sex: Female
  Weight: 56.25 kg

DRUGS (5)
  1. MULTI-VITAMIN [Concomitant]
     Active Substance: .ALPHA.-TOCOPHEROL ACETATE, DL-\ASCORBIC ACID\CYANOCOBALAMIN\FLUORIDE ION\FOLIC ACID\NIACIN\PYRIDOXINE\RIBOFLAVIN\THIAMINE\VITAMIN A\VITAMIN D
  2. MAGNESIUM [Concomitant]
     Active Substance: MAGNESIUM
  3. LEVAQUIN [Suspect]
     Active Substance: LEVOFLOXACIN
     Indication: SINUSITIS
     Dosage: ?          QUANTITY:1 TABLET(S);?
     Route: 048
  4. PROBIOTIC [Concomitant]
     Active Substance: PROBIOTICS NOS
  5. IRON [Concomitant]
     Active Substance: IRON

REACTIONS (11)
  - Gait disturbance [None]
  - Confusional state [None]
  - Wrong technique in product usage process [None]
  - Palpitations [None]
  - Incorrect dose administered [None]
  - Dizziness [None]
  - Fatigue [None]
  - Musculoskeletal pain [None]
  - Impaired driving ability [None]
  - Muscular weakness [None]
  - Dyspnoea [None]

NARRATIVE: CASE EVENT DATE: 20170412
